FAERS Safety Report 6858600-5 (Version None)
Quarter: 2010Q3

REPORT INFORMATION
  Report Type: 
  Country: None (occurrence: None)
  Receive Date: 20100719
  Receipt Date: 20080429
  Transmission Date: 20110219
  Serious: No
  Sender: FDA-Public Use
  Company Number: US-PFIZER INC-2008013330

PATIENT
  Sex: Male
  Weight: 117.9 kg

DRUGS (10)
  1. CHANTIX [Suspect]
     Indication: SMOKING CESSATION THERAPY
     Dates: start: 20071201
  2. ACETYLSALICYLIC ACID [Concomitant]
  3. CITALOPRAM HYDROBROMIDE [Concomitant]
  4. FOSAMAX [Concomitant]
  5. FUROSEMIDE [Concomitant]
  6. OMEPRAZOLE [Concomitant]
  7. DEPAKOTE [Concomitant]
  8. PRAZOSIN [Concomitant]
  9. ABILIFY [Concomitant]
  10. SIMVASTATIN [Concomitant]

REACTIONS (10)
  - DYSPNOEA [None]
  - FATIGUE [None]
  - FLATULENCE [None]
  - INSOMNIA [None]
  - NAUSEA [None]
  - NIGHTMARE [None]
  - PAIN [None]
  - SPEECH DISORDER [None]
  - TOBACCO USER [None]
  - VOMITING [None]
